FAERS Safety Report 9102997 (Version 1)
Quarter: 2013Q1

REPORT INFORMATION
  Report Type: Report from Study
  Country: CA (occurrence: CA)
  Receive Date: 20130218
  Receipt Date: 20130218
  Transmission Date: 20140127
  Serious: Yes (Other)
  Sender: FDA-Public Use
  Company Number: CA-ROCHE-1191329

PATIENT
  Age: 67 Year
  Sex: 0

DRUGS (4)
  1. AVASTIN [Suspect]
     Indication: COLORECTAL CANCER
     Route: 065
     Dates: start: 201109, end: 201212
  2. LEUCOVORIN [Suspect]
     Indication: COLORECTAL CANCER
     Route: 065
     Dates: start: 201206, end: 201212
  3. 5-FU [Suspect]
     Indication: COLORECTAL CANCER
     Route: 065
     Dates: start: 201206, end: 201212
  4. IRINOTECAN [Suspect]
     Indication: COLORECTAL CANCER
     Route: 065
     Dates: start: 201206, end: 201212

REACTIONS (1)
  - Disease progression [Unknown]
